FAERS Safety Report 6130799-8 (Version None)
Quarter: 2009Q1

REPORT INFORMATION
  Report Type: 
  Country: None (occurrence: None)
  Receive Date: 20090325
  Receipt Date: 20090314
  Transmission Date: 20090719
  Serious: Yes (Hospitalization)
  Sender: FDA-Public Use
  Company Number: DE-WYE-H08617209

PATIENT
  Sex: Male

DRUGS (5)
  1. PANTOZOL [Suspect]
     Route: 048
     Dates: start: 20051205, end: 20081113
  2. FOSAMAX [Suspect]
     Route: 048
     Dates: start: 20080514
  3. ALLOPURINOL [Suspect]
     Indication: HYPERURICAEMIA
     Route: 048
     Dates: start: 20051011, end: 20081113
  4. MYFORTIC [Suspect]
     Indication: RENAL TRANSPLANT
     Dosage: UNSPECIFIED
     Route: 048
     Dates: start: 20071114, end: 20081103
  5. PROGRAF [Suspect]
     Indication: RENAL TRANSPLANT
     Dosage: 3 MG
     Route: 048

REACTIONS (1)
  - BONE MARROW FAILURE [None]
